FAERS Safety Report 4575588-0 (Version None)
Quarter: 2005Q1

REPORT INFORMATION
  Report Type: 
  Country: None (occurrence: None)
  Receive Date: 20050209
  Receipt Date: 20050128
  Transmission Date: 20050727
  Serious: Yes (Death, Hospitalization)
  Sender: FDA-Public Use
  Company Number: US-JNJFOC-20050200395

PATIENT
  Sex: Male

DRUGS (3)
  1. RISPERDAL [Suspect]
     Indication: ANXIETY
     Route: 049
     Dates: start: 20041227, end: 20041229
  2. RISPERDAL [Suspect]
     Route: 049
     Dates: start: 20041227, end: 20041229
  3. ARICEPT [Concomitant]

REACTIONS (2)
  - DEATH [None]
  - INCOHERENT [None]
